FAERS Safety Report 19077515 (Version 1)
Quarter: 2021Q1

REPORT INFORMATION
  Report Type: Spontaneous
  Country: US (occurrence: US)
  Receive Date: 20210331
  Receipt Date: 20210331
  Transmission Date: 20210420
  Serious: No
  Sender: FDA-Public Use
  Company Number: US-ORION CORPORATION ORION PHARMA-ENT 2020-0078

PATIENT
  Age: 81 Year
  Sex: Female
  Weight: 55.3 kg

DRUGS (7)
  1. ENTACAPONE (TRADE NAME UNKNOWN) [Suspect]
     Active Substance: ENTACAPONE
     Indication: PRODUCT USED FOR UNKNOWN INDICATION
     Route: 065
  2. ZANTAC [Concomitant]
     Active Substance: RANITIDINE HYDROCHLORIDE
     Route: 065
  3. NOURIANZ [Concomitant]
     Active Substance: ISTRADEFYLLINE
     Route: 065
  4. INBRIJA [Suspect]
     Active Substance: LEVODOPA
     Indication: ON AND OFF PHENOMENON
     Dosage: NOT TO EXCEED 5 DOSES A DAY
     Route: 055
  5. ENTACAPONE (TRADE NAME UNKNOWN) [Suspect]
     Active Substance: ENTACAPONE
     Dosage: DOSE REDUCED
     Route: 065
  6. INBRIJA [Suspect]
     Active Substance: LEVODOPA
     Indication: PARKINSON^S DISEASE
     Dosage: 1 PUFF PER DAY
     Route: 055
     Dates: start: 20200420
  7. CARBIDOPA;LEVODOPA [Concomitant]
     Active Substance: CARBIDOPA\LEVODOPA
     Route: 065

REACTIONS (3)
  - Fatigue [Recovered/Resolved]
  - Hallucination [Unknown]
  - Weight decreased [Unknown]

NARRATIVE: CASE EVENT DATE: 20190420
